FAERS Safety Report 14747312 (Version 1)
Quarter: 2018Q2

REPORT INFORMATION
  Report Type: Spontaneous
  Country: IT (occurrence: IT)
  Receive Date: 20180411
  Receipt Date: 20180411
  Transmission Date: 20180711
  Serious: Yes (Other)
  Sender: FDA-Public Use
  Company Number: IT-009507513-1804ITA002594

PATIENT
  Age: 61 Year
  Sex: Female

DRUGS (1)
  1. PEMBROLIZUMAB. [Suspect]
     Active Substance: PEMBROLIZUMAB
     Indication: MALIGNANT MELANOMA
     Dosage: CYCLICAL
     Route: 042
     Dates: start: 20160511, end: 20170824

REACTIONS (1)
  - Endocrine toxicity [Unknown]

NARRATIVE: CASE EVENT DATE: 20170824
